FAERS Safety Report 4659961-8 (Version None)
Quarter: 2005Q2

REPORT INFORMATION
  Report Type: 
  Country: None (occurrence: None)
  Receive Date: 20050502
  Receipt Date: 20050308
  Transmission Date: 20051028
  Serious: Yes (Hospitalization)
  Sender: FDA-Public Use
  Company Number: USA050392356

PATIENT
  Age: 32 Year
  Sex: Female

DRUGS (1)
  1. SYMBYAX [Suspect]
     Indication: BIPOLAR I DISORDER
     Dates: start: 20050201, end: 20050225

REACTIONS (4)
  - DIZZINESS [None]
  - EYE PAIN [None]
  - FACIAL PALSY [None]
  - MYALGIA [None]
